FAERS Safety Report 13726831 (Version 1)
Quarter: 2017Q3

REPORT INFORMATION
  Report Type: Spontaneous
  Country: GB (occurrence: GB)
  Receive Date: 20170707
  Receipt Date: 20170707
  Transmission Date: 20171127
  Serious: Yes (Congenital Anomaly)
  Sender: FDA-Public Use
  Company Number: GB-ABBVIE-17P-167-2029196-00

PATIENT
  Sex: Female

DRUGS (2)
  1. SODIUM VALPROATE [Suspect]
     Active Substance: VALPROATE SODIUM
     Indication: MATERNAL EXPOSURE TIMING UNSPECIFIED
     Route: 064
  2. CARBAMAZEPINE. [Suspect]
     Active Substance: CARBAMAZEPINE
     Indication: MATERNAL EXPOSURE TIMING UNSPECIFIED
     Route: 064

REACTIONS (22)
  - Foetal anticonvulsant syndrome [Unknown]
  - Dysmorphism [Unknown]
  - Congenital oral malformation [Unknown]
  - Brachycephaly [Unknown]
  - Cleft palate [Unknown]
  - Micrognathia [Unknown]
  - Anomaly of orbit, congenital [Unknown]
  - Lip disorder [Unknown]
  - Anomaly of external ear congenital [Unknown]
  - Congenital tongue anomaly [Unknown]
  - Pyloric stenosis [Unknown]
  - Deformity thorax [Unknown]
  - Growth retardation [Unknown]
  - Developmental delay [Unknown]
  - Haemangioma [Unknown]
  - Nipple disorder [Unknown]
  - Hypertelorism of orbit [Unknown]
  - Strabismus [Unknown]
  - Foetal exposure during pregnancy [Unknown]
  - Macrodactyly [Unknown]
  - Motor developmental delay [Unknown]
  - Nose deformity [Unknown]
